FAERS Safety Report 5108306-8 (Version None)
Quarter: 2006Q3

REPORT INFORMATION
  Report Type: 
  Country: None (occurrence: None)
  Receive Date: 20060914
  Receipt Date: 20060914
  Transmission Date: 20061208
  Serious: Yes (Life-Threatening, Hospitalization)
  Sender: FDA-Public Use
  Company Number: None

PATIENT
  Age: 50 Year
  Sex: Male
  Weight: 79.3795 kg

DRUGS (1)
  1. VIOXX [Suspect]
     Dosage: 50 MG/ ONCE DAILY OTHER

REACTIONS (3)
  - BONE DISORDER [None]
  - IMPAIRED HEALING [None]
  - SPINAL DISORDER [None]
